FAERS Safety Report 16809686 (Version 5)
Quarter: 2019Q4

REPORT INFORMATION
  Report Type: Report from Study
  Country: JP (occurrence: JP)
  Receive Date: 20190916
  Receipt Date: 20191029
  Transmission Date: 20200122
  Serious: Yes (Hospitalization, Other)
  Sender: FDA-Public Use
  Company Number: JP-BAYER-2019-168191

PATIENT
  Age: 65 Year
  Sex: Male
  Weight: 60.6 kg

DRUGS (24)
  1. COPANLISIB. [Suspect]
     Active Substance: COPANLISIB
     Indication: NON-HODGKIN^S LYMPHOMA
     Dosage: 60 MG, QD
     Route: 041
     Dates: start: 20190905, end: 20190905
  2. RETICOLAN [Concomitant]
     Active Substance: METHYLCOBALAMIN
     Indication: PERIPHERAL SENSORY NEUROPATHY
     Dosage: TOTAL DAILY DOSE 1500 ?G
     Route: 048
     Dates: start: 20170310, end: 20190911
  3. TREAKISYM [Concomitant]
     Active Substance: BENDAMUSTINE HYDROCHLORIDE
     Indication: LYMPHOPLASMACYTOID LYMPHOMA/IMMUNOCYTOMA
     Dosage: TOTAL DAILY DOSE 160MG
     Route: 041
     Dates: start: 20190830, end: 20190830
  4. TRAZENTA [Concomitant]
     Active Substance: LINAGLIPTIN
     Indication: HYPERGLYCAEMIA
     Dosage: TOTAL DAILY DOSE 5MG
     Route: 048
     Dates: start: 20190830, end: 20190914
  5. TRESIBA [Concomitant]
     Active Substance: INSULIN DEGLUDEC
     Indication: HYPERGLYCAEMIA
     Dosage: ADJUSTED TO GLUCOSE VALUE
     Route: 058
     Dates: start: 20190903, end: 20190912
  6. ACICLOVIR [Concomitant]
     Active Substance: ACYCLOVIR
     Indication: INFECTION PROPHYLAXIS
     Dosage: TOTAL DAILY DOSE 200MG
     Route: 048
     Dates: start: 20190907
  7. RITUXIMAB. [Suspect]
     Active Substance: RITUXIMAB
     Indication: NON-HODGKIN^S LYMPHOMA
     Dosage: UNK
     Dates: start: 20190829
  8. NIFEDIPINE. [Concomitant]
     Active Substance: NIFEDIPINE
     Indication: HYPERTENSION
     Dosage: TOTAL DAILY DOSE 10MG
     Route: 048
     Dates: start: 20171110, end: 20190911
  9. LYRICA [Concomitant]
     Active Substance: PREGABALIN
     Indication: PERIPHERAL SENSORY NEUROPATHY
     Dosage: TOTAL DAILY DOSE 150MG
     Route: 048
     Dates: start: 20170310, end: 20190911
  10. RITUXAN [Concomitant]
     Active Substance: RITUXIMAB
     Indication: LYMPHOPLASMACYTOID LYMPHOMA/IMMUNOCYTOMA
     Dosage: TOTAL DAILY DOSE 660MG
     Route: 041
     Dates: start: 20190829, end: 20190829
  11. COPANLISIB. [Suspect]
     Active Substance: COPANLISIB
     Indication: NON-HODGKIN^S LYMPHOMA
     Dosage: 60 MG, QD
     Route: 041
     Dates: start: 20190829, end: 20190829
  12. COPANLISIB. [Suspect]
     Active Substance: COPANLISIB
     Indication: NON-HODGKIN^S LYMPHOMA
     Dosage: 45 MG, QD
     Route: 041
     Dates: start: 20191003, end: 20191003
  13. PIOGLITAZONE. [Concomitant]
     Active Substance: PIOGLITAZONE
     Indication: HYPERGLYCAEMIA
     Dosage: TOTAL DAILY DOSE 15MG
     Route: 048
     Dates: start: 20190903
  14. TREAKISYM [Concomitant]
     Active Substance: BENDAMUSTINE HYDROCHLORIDE
     Indication: LYMPHOPLASMACYTOID LYMPHOMA/IMMUNOCYTOMA
     Dosage: TOTAL DAILY DOSE 160MG
     Route: 041
     Dates: start: 20190829, end: 20190829
  15. LYRICA [Concomitant]
     Active Substance: PREGABALIN
     Indication: PERIPHERAL SENSORY NEUROPATHY
     Dosage: TOTAL DAILY 150 MG
     Route: 048
     Dates: start: 20190912
  16. COPANLISIB. [Suspect]
     Active Substance: COPANLISIB
     Indication: NON-HODGKIN^S LYMPHOMA
     Dosage: 45 MG, QD
     Route: 041
     Dates: start: 20190926, end: 20190926
  17. NOVORAPID [Concomitant]
     Active Substance: INSULIN ASPART
     Indication: HYPERGLYCAEMIA
     Dosage: ADJUSTED TO GLUCOSE VALUE
     Route: 058
     Dates: start: 20190904, end: 20190912
  18. AZUNOL GARGLE LIQUID [Concomitant]
     Indication: INFECTION PROPHYLAXIS
     Dosage: ADEQUATE DOSE
     Route: 002
     Dates: start: 20190908
  19. VASOLAN [ISOXSUPRINE HYDROCHLORIDE] [Concomitant]
     Active Substance: ISOXSUPRINE HYDROCHLORIDE
     Indication: SUPRAVENTRICULAR TACHYCARDIA
     Dosage: DAILY DOSE 5 MG
     Route: 042
     Dates: start: 20190911, end: 20190911
  20. BENDAMUSTINE [Suspect]
     Active Substance: BENDAMUSTINE
     Indication: NON-HODGKIN^S LYMPHOMA
     Dosage: UNK
     Dates: start: 20190829
  21. CYMBALTA [Concomitant]
     Active Substance: DULOXETINE HYDROCHLORIDE
     Indication: PERIPHERAL SENSORY NEUROPATHY
     Dosage: TOTAL DAILY DOSE 20MG
     Route: 048
     Dates: start: 20170609
  22. METFORMIN [Concomitant]
     Active Substance: METFORMIN HYDROCHLORIDE
     Indication: HYPERGLYCAEMIA
     Dosage: DAILY DOSE 1000 MG
     Route: 048
     Dates: start: 20190906
  23. FEBURIC [Concomitant]
     Active Substance: FEBUXOSTAT
     Indication: HYPERURICAEMIA
     Dosage: TOTAL DAILY DOSE 20MG
     Route: 048
     Dates: start: 20161014
  24. BACTRAMIN [Concomitant]
     Active Substance: SULFAMETHOXAZOLE\TRIMETHOPRIM
     Indication: INFECTION PROPHYLAXIS
     Dosage: DAILY DOSE 2 DF
     Route: 048
     Dates: start: 20190908

REACTIONS (2)
  - Toxic skin eruption [Recovered/Resolved]
  - Lymphocyte count decreased [Recovered/Resolved]

NARRATIVE: CASE EVENT DATE: 20190911
